FAERS Safety Report 26192914 (Version 1)
Quarter: 2025Q4

REPORT INFORMATION
  Report Type: Spontaneous
  Country: EU (occurrence: EU)
  Receive Date: 20251223
  Receipt Date: 20251223
  Transmission Date: 20260118
  Serious: Yes (Other)
  Sender: NOVARTIS
  Company Number: EU-002147023-NVSC2025CZ194574

PATIENT
  Sex: Male

DRUGS (7)
  1. CYCLOSPORINE [Suspect]
     Active Substance: CYCLOSPORINE
     Indication: Chronic inflammatory demyelinating polyradiculoneuropathy
     Dosage: 150 MG, QD
     Route: 065
     Dates: start: 200511
  2. CYCLOSPORINE [Suspect]
     Active Substance: CYCLOSPORINE
     Dosage: 250 MG, QD
     Route: 065
     Dates: start: 2011
  3. CYCLOSPORINE [Suspect]
     Active Substance: CYCLOSPORINE
     Dosage: 400 MG, QD
     Route: 065
     Dates: start: 2013
  4. CYCLOSPORINE [Suspect]
     Active Substance: CYCLOSPORINE
     Dosage: 175 MG, QD
     Route: 065
     Dates: start: 2024
  5. CYCLOPHOSPHAMIDE [Concomitant]
     Active Substance: CYCLOPHOSPHAMIDE
     Indication: Chronic inflammatory demyelinating polyradiculoneuropathy
     Dosage: 1.2 G (4 CYCLES)
     Route: 042
     Dates: start: 2011
  6. RITUXIMAB [Concomitant]
     Active Substance: RITUXIMAB
     Indication: Chronic inflammatory demyelinating polyradiculoneuropathy
     Dosage: 700 MG (2  INFUSIONS)
     Route: 042
  7. PREDNISONE [Concomitant]
     Active Substance: PREDNISONE
     Indication: Chronic inflammatory demyelinating polyradiculoneuropathy
     Dosage: 20 MG, QD
     Route: 065
     Dates: end: 2011

REACTIONS (9)
  - Chronic inflammatory demyelinating polyradiculoneuropathy [Recovered/Resolved]
  - Quadriparesis [Recovered/Resolved]
  - Areflexia [Recovered/Resolved]
  - Sensory disturbance [Recovered/Resolved]
  - Monoclonal gammopathy [Recovered/Resolved]
  - Disease progression [Recovered/Resolved]
  - Ataxia [Recovered/Resolved]
  - Respiratory tract infection [Recovered/Resolved]
  - Off label use [Unknown]

NARRATIVE: CASE EVENT DATE: 20050101
